FAERS Safety Report 12519858 (Version 2)
Quarter: 2016Q3

REPORT INFORMATION
  Report Type: Spontaneous
  Country: JP (occurrence: JP)
  Receive Date: 20160630
  Receipt Date: 20160802
  Transmission Date: 20161109
  Serious: Yes (Other)
  Sender: FDA-Public Use
  Company Number: JP-PFIZER INC-2016281962

PATIENT
  Age: 69 Year
  Sex: Female

DRUGS (4)
  1. SOLANAX [Suspect]
     Active Substance: ALPRAZOLAM
     Dosage: 0.4 MG ONCE DAILY
     Route: 048
     Dates: start: 20160404, end: 20160501
  2. EFFEXOR [Suspect]
     Active Substance: VENLAFAXINE HYDROCHLORIDE
     Indication: DEPRESSION
     Dosage: 37.5 MG ONCE DAILY
     Route: 048
     Dates: start: 20160502, end: 20160508
  3. EFFEXOR [Suspect]
     Active Substance: VENLAFAXINE HYDROCHLORIDE
     Indication: ABULIA
     Dosage: 75 MG ONCE DAILY
     Route: 048
     Dates: start: 20160509, end: 20160520
  4. SOLANAX [Suspect]
     Active Substance: ALPRAZOLAM
     Indication: ANXIETY
     Dosage: 0.4 MG, 2X/DAY
     Route: 048
     Dates: start: 20150904, end: 20160403

REACTIONS (8)
  - Insomnia [Recovering/Resolving]
  - Condition aggravated [Recovering/Resolving]
  - Abdominal discomfort [Recovering/Resolving]
  - Hallucination, auditory [Recovering/Resolving]
  - Ear discomfort [Unknown]
  - Weight decreased [Unknown]
  - Decreased appetite [Recovering/Resolving]
  - Nausea [Recovering/Resolving]

NARRATIVE: CASE EVENT DATE: 201605
